FAERS Safety Report 9096503 (Version 1)
Quarter: 2013Q1

REPORT INFORMATION
  Report Type: Spontaneous
  Country: NZ (occurrence: None)
  Receive Date: 20130124
  Receipt Date: 20130124
  Transmission Date: 20140127
  Serious: Yes (Other)
  Sender: FDA-Public Use
  Company Number: IPC201211-000612

PATIENT
  Age: 78 Year
  Sex: Female

DRUGS (1)
  1. ATENOLOL (ATENOLOL) (ATENOLOL) [Suspect]
     Indication: BLOOD PRESSURE
     Route: 048
     Dates: start: 20121115

REACTIONS (2)
  - Drug ineffective [None]
  - Hypertension [None]
